FAERS Safety Report 23201907 (Version 2)
Quarter: 2023Q4

REPORT INFORMATION
  Report Type: Spontaneous
  Country: AR (occurrence: AR)
  Receive Date: 20231120
  Receipt Date: 20231206
  Transmission Date: 20240109
  Serious: Yes (Hospitalization, Other)
  Sender: FDA-Public Use
  Company Number: AR-002147023-NVSC2023AR238275

PATIENT
  Age: 33 Year
  Sex: Male

DRUGS (27)
  1. CERTICAN [Suspect]
     Active Substance: EVEROLIMUS
     Indication: Immunosuppression
     Dosage: UNK
     Route: 065
     Dates: start: 20110909
  2. CERTICAN [Suspect]
     Active Substance: EVEROLIMUS
     Dosage: UNK
     Route: 065
     Dates: start: 201204
  3. CERTICAN [Suspect]
     Active Substance: EVEROLIMUS
     Dosage: 6 DOSAGE FORM, QD
     Route: 065
     Dates: start: 20141010
  4. CERTICAN [Suspect]
     Active Substance: EVEROLIMUS
     Dosage: UNK (DOSAGE 7.4)
     Route: 065
     Dates: start: 20150923
  5. CERTICAN [Suspect]
     Active Substance: EVEROLIMUS
     Dosage: UNK (DOSAGE 4.9)
     Route: 065
     Dates: start: 20161130
  6. CERTICAN [Suspect]
     Active Substance: EVEROLIMUS
     Dosage: UNK (DOSAGE 7)
     Route: 065
     Dates: start: 20170614
  7. CERTICAN [Suspect]
     Active Substance: EVEROLIMUS
     Dosage: UNK (DOSAGE 7.1)
     Route: 065
     Dates: start: 20180314
  8. CERTICAN [Suspect]
     Active Substance: EVEROLIMUS
     Dosage: UNK (DOSAGE 4.5)
     Route: 065
     Dates: start: 20201111
  9. CERTICAN [Suspect]
     Active Substance: EVEROLIMUS
     Dosage: UNK (DOSAGE 7.1)
     Route: 065
     Dates: start: 20220914
  10. CERTICAN [Suspect]
     Active Substance: EVEROLIMUS
     Dosage: 3 MG (X60), QD
     Route: 065
  11. CERTICAN [Suspect]
     Active Substance: EVEROLIMUS
     Dosage: 8 MG
     Route: 065
  12. MYFORTIC [Suspect]
     Active Substance: MYCOPHENOLATE SODIUM
     Indication: Product used for unknown indication
     Dosage: UNK
     Route: 065
  13. TAMSULOSIN [Suspect]
     Active Substance: TAMSULOSIN
     Indication: Product used for unknown indication
     Dosage: UNK
     Route: 065
     Dates: start: 20160302
  14. INFLUENZA VIRUS VACCINE [Concomitant]
     Active Substance: INFLUENZA VIRUS VACCINE
     Indication: Product used for unknown indication
     Dosage: UNK
     Route: 065
     Dates: start: 201307
  15. DELTISONA B [Concomitant]
     Indication: Product used for unknown indication
     Dosage: UNK
     Route: 065
     Dates: start: 201204
  16. DELTISONA B [Concomitant]
     Dosage: 12 MG, QD
     Route: 065
     Dates: start: 20230503
  17. DELTISONA B [Concomitant]
     Dosage: 20 MG, QD
     Route: 065
     Dates: start: 20230823
  18. DELTISONA B [Concomitant]
     Dosage: 40 MG, QD (EVERY OTHER DAY)
     Route: 065
     Dates: start: 20230913
  19. DELTISONA B [Concomitant]
     Dosage: 12 MG, QD
     Route: 065
     Dates: start: 20230816
  20. DELTISONA B [Concomitant]
     Dosage: 1 DOSAGE FORM (X20), QD
     Route: 065
  21. ENALAPRIL [Concomitant]
     Active Substance: ENALAPRIL
     Indication: Product used for unknown indication
     Dosage: UNK
     Route: 065
  22. ENALAPRIL [Concomitant]
     Active Substance: ENALAPRIL
     Dosage: 10 MG, QD
     Route: 065
     Dates: start: 20230927
  23. ENALAPRIL [Concomitant]
     Active Substance: ENALAPRIL
     Dosage: 1 DOSAGE FORM, QD
     Route: 065
  24. ALPRAZOLAM [Concomitant]
     Active Substance: ALPRAZOLAM
     Indication: Product used for unknown indication
     Dosage: 1 MG (X30), QD
     Route: 065
  25. DAUNLIP [Concomitant]
     Indication: Product used for unknown indication
     Dosage: 1 DOSAGE FORM (X30), QD
     Route: 065
  26. ACIMED [Concomitant]
     Indication: Product used for unknown indication
     Dosage: 1 DOSAGE FORM (X30), QD
     Route: 065
  27. FOLIC ACID [Concomitant]
     Active Substance: FOLIC ACID
     Indication: Product used for unknown indication
     Dosage: 5 MG
     Route: 065

REACTIONS (90)
  - Erythema nodosum [Recovering/Resolving]
  - Subcutaneous biopsy [Recovering/Resolving]
  - Rash erythematous [Recovering/Resolving]
  - Fluid retention [Recovering/Resolving]
  - Panniculitis [Recovering/Resolving]
  - Haemorrhage [Recovering/Resolving]
  - Lung infiltration [Unknown]
  - Toxicity to various agents [Recovering/Resolving]
  - Aortic arteriosclerosis [Unknown]
  - Transplant dysfunction [Unknown]
  - Iliac artery stenosis [Unknown]
  - Nephropathy toxic [Unknown]
  - Upper respiratory tract congestion [Unknown]
  - Cough [Unknown]
  - Productive cough [Unknown]
  - Pyrexia [Unknown]
  - Dyspnoea [Unknown]
  - Pain [Recovering/Resolving]
  - Leukopenia [Unknown]
  - Thrombosis [Unknown]
  - Lower respiratory tract infection [Unknown]
  - Sunburn [Unknown]
  - Enterococcus test positive [Unknown]
  - Increased appetite [Unknown]
  - Weight decreased [Unknown]
  - Rhinitis [Unknown]
  - Bladder spasm [Unknown]
  - Urethral pain [Unknown]
  - Road traffic accident [Unknown]
  - Hyperhidrosis [Unknown]
  - Injury [Unknown]
  - Blood creatinine abnormal [Unknown]
  - Leukocyturia [Unknown]
  - Sinus pain [Unknown]
  - Fistula [Unknown]
  - Dermatitis [Unknown]
  - Purulent discharge [Unknown]
  - Renal scan abnormal [Unknown]
  - Feeling hot [Unknown]
  - Culture urine positive [Unknown]
  - Drug intolerance [Unknown]
  - Oral infection [Unknown]
  - General physical health deterioration [Unknown]
  - Mycobacterium test positive [Unknown]
  - Blood pressure abnormal [Unknown]
  - Snoring [Unknown]
  - Andropause [Unknown]
  - Creatinine renal clearance abnormal [Unknown]
  - Blood creatinine increased [Unknown]
  - Poor peripheral circulation [Unknown]
  - Intermittent claudication [Unknown]
  - Pain in extremity [Unknown]
  - Lower urinary tract symptoms [Unknown]
  - Bladder hypertrophy [Unknown]
  - Synovitis [Unknown]
  - Peripheral venous disease [Unknown]
  - Asthenia [Unknown]
  - Decreased appetite [Unknown]
  - Body temperature increased [Unknown]
  - Early satiety [Unknown]
  - Discouragement [Unknown]
  - Arterial occlusive disease [Unknown]
  - Arteriosclerosis [Unknown]
  - Gouty tophus [Unknown]
  - Gouty arthritis [Unknown]
  - Psoriasis [Unknown]
  - Skin plaque [Unknown]
  - Muscle spasms [Unknown]
  - Hypersomnia [Unknown]
  - Red blood cell sedimentation rate abnormal [Unknown]
  - Blood urea abnormal [Unknown]
  - Erythema [Unknown]
  - Iliac artery disease [Unknown]
  - Dysuria [Unknown]
  - Osteoporosis [Unknown]
  - Osteopenia [Unknown]
  - Dyslipidaemia [Unknown]
  - Rhinorrhoea [Unknown]
  - Sinusitis [Unknown]
  - Gout [Unknown]
  - Cellulitis [Unknown]
  - Oedema [Unknown]
  - Oedema peripheral [Unknown]
  - Diarrhoea [Unknown]
  - Abdominal pain [Unknown]
  - Abdominal pain lower [Unknown]
  - Upper respiratory tract infection [Unknown]
  - Urinary tract infection [Unknown]
  - Cyst [Unknown]
  - Discomfort [Unknown]

NARRATIVE: CASE EVENT DATE: 20111101
